FAERS Safety Report 20380189 (Version 1)
Quarter: 2022Q1

REPORT INFORMATION
  Report Type: Spontaneous
  Country: US (occurrence: US)
  Receive Date: 20220126
  Receipt Date: 20220126
  Transmission Date: 20220423
  Serious: No
  Sender: FDA-Public Use
  Company Number: US-drreddys-SPO/USA/22/0145816

PATIENT
  Sex: Female

DRUGS (1)
  1. BUPRENORPHINE\NALOXONE [Suspect]
     Active Substance: BUPRENORPHINE\NALOXONE
     Indication: Product used for unknown indication
     Dosage: 8MG/2MG
     Route: 060

REACTIONS (4)
  - Impaired quality of life [Unknown]
  - Flushing [Unknown]
  - Feeling cold [Unknown]
  - Hyperhidrosis [Unknown]
